FAERS Safety Report 6649447-3 (Version None)
Quarter: 2010Q1

REPORT INFORMATION
  Report Type: 
  Country: None (occurrence: None)
  Receive Date: 20100322
  Receipt Date: 20100308
  Transmission Date: 20100710
  Serious: Yes (Hospitalization)
  Sender: FDA-Public Use
  Company Number: 234340K09USA

PATIENT
  Age: 37 Year
  Sex: Female

DRUGS (9)
  1. REBIF [Suspect]
     Indication: MULTIPLE SCLEROSIS
     Dosage: 8.8 MCG, 3 IN 1 WEEKS, SUBCUTANEOUS
     Route: 058
     Dates: start: 20090415, end: 20090422
  2. IBUPROFEN [Concomitant]
  3. PROZAC (FLUCOXETINE HYDROCHLORIDE) [Concomitant]
  4. LAMICTAL [Concomitant]
  5. METOPROLOL SUCCINATE [Concomitant]
  6. MIRTAZAPINE [Concomitant]
  7. MULTI-VITAMINS AND MINERALS (MULTIVITAMIN AND MINERAL) [Concomitant]
  8. AMBIEN [Concomitant]
  9. FLEX (ALL OVER THERAPEUTIC PRODUCTS) [Concomitant]

REACTIONS (21)
  - ALANINE AMINOTRANSFERASE INCREASED [None]
  - ANXIETY [None]
  - ARTHRALGIA [None]
  - ASPARTATE AMINOTRANSFERASE INCREASED [None]
  - ASTHENIA [None]
  - BLOOD ALKALINE PHOSPHATASE INCREASED [None]
  - BONE PAIN [None]
  - DEPRESSION [None]
  - HAEMATOCRIT DECREASED [None]
  - HYPOAESTHESIA [None]
  - LIVER FUNCTION TEST ABNORMAL [None]
  - MONOCYTE COUNT INCREASED [None]
  - NAUSEA [None]
  - NECK PAIN [None]
  - NEUTROPHIL COUNT DECREASED [None]
  - NUCHAL RIGIDITY [None]
  - PAIN [None]
  - PYREXIA [None]
  - SINUSITIS [None]
  - VOMITING [None]
  - WHITE BLOOD CELL COUNT DECREASED [None]
